FAERS Safety Report 12983706 (Version 5)
Quarter: 2017Q3

REPORT INFORMATION
  Report Type: Report from Study
  Country: None (occurrence: US)
  Receive Date: 20161129
  Receipt Date: 20170731
  Transmission Date: 20171127
  Serious: Yes (Other)
  Sender: FDA-Public Use
  Company Number: US-ABBVIE-16K-163-1790520-00

PATIENT
  Age: 51 Year
  Sex: Female

DRUGS (1)
  1. HUMIRA [Suspect]
     Active Substance: ADALIMUMAB
     Indication: RHEUMATOID ARTHRITIS
     Route: 058
     Dates: end: 2017

REACTIONS (19)
  - Nephrolithiasis [Unknown]
  - Seizure [Unknown]
  - Seizure [Unknown]
  - Swelling [Unknown]
  - Joint swelling [Unknown]
  - Insomnia [Unknown]
  - Post procedural complication [Unknown]
  - Seizure [Unknown]
  - Peripheral swelling [Unknown]
  - Stress [Unknown]
  - Exertional headache [Unknown]
  - Kidney infection [Unknown]
  - Systemic lupus erythematosus [Unknown]
  - Seizure [Unknown]
  - Headache [Unknown]
  - Fatigue [Unknown]
  - Fibromyalgia [Unknown]
  - Clostridium difficile infection [Unknown]
  - Diarrhoea [Unknown]

NARRATIVE: CASE EVENT DATE: 201705
